FAERS Safety Report 9369990 (Version 1)
Quarter: 2013Q2

REPORT INFORMATION
  Report Type: Report from Study
  Country: US (occurrence: US)
  Receive Date: 20130626
  Receipt Date: 20130626
  Transmission Date: 20140414
  Serious: Yes (Other)
  Sender: FDA-Public Use
  Company Number: US-BAYER-2013-077672

PATIENT
  Age: 44 Year
  Sex: Male

DRUGS (1)
  1. VARDENAFIL HYDROCHLORIDE [Suspect]
     Indication: ERECTILE DYSFUNCTION
     Dosage: 20 MG, UNK
     Route: 048

REACTIONS (2)
  - Optic ischaemic neuropathy [Unknown]
  - Blindness unilateral [None]
